FAERS Safety Report 8830607 (Version 1)
Quarter: 2012Q4

REPORT INFORMATION
  Report Type: 
  Country: BR (occurrence: BR)
  Receive Date: 20121009
  Receipt Date: 20121009
  Transmission Date: 20130627
  Serious: Yes (Hospitalization, Other)
  Sender: FDA-Public Use
  Company Number: BR-PFIZER INC-2012245898

PATIENT
  Age: 63 Year
  Sex: Male

DRUGS (2)
  1. LIPITOR [Suspect]
     Indication: BLOOD TRIGLYCERIDES
     Dosage: 40 mg (one tablet), 1x/day
     Route: 048
     Dates: start: 2008, end: 2010
  2. LYRICA [Suspect]
     Indication: SURGERY
     Dosage: 75 mg (one capsule), 2x/day
     Route: 048
     Dates: start: 201004, end: 201006

REACTIONS (3)
  - Carpal tunnel syndrome [Unknown]
  - Carpal tunnel syndrome [Unknown]
  - Carpal tunnel syndrome [Unknown]
